FAERS Safety Report 7169992-4 (Version None)
Quarter: 2010Q4

REPORT INFORMATION
  Report Type: 
  Country: None (occurrence: None)
  Receive Date: 20101217
  Receipt Date: 20101215
  Transmission Date: 20110411
  Serious: Yes (Death)
  Sender: FDA-Public Use
  Company Number: US-CUBIST-2010S1001785

PATIENT
  Age: 75 Year
  Sex: Male

DRUGS (3)
  1. CUBICIN [Suspect]
     Indication: BACTERAEMIA
     Route: 042
  2. RIFAMPIN [Suspect]
     Indication: BACTERAEMIA
     Route: 048
  3. VANCOMYCIN [Concomitant]

REACTIONS (1)
  - GENERAL PHYSICAL HEALTH DETERIORATION [None]
